FAERS Safety Report 9785345 (Version 2)
Quarter: 2014Q1

REPORT INFORMATION
  Report Type: Report from Study
  Country: CA (occurrence: CA)
  Receive Date: 20131227
  Receipt Date: 20140218
  Transmission Date: 20141002
  Serious: Yes (Death, Hospitalization)
  Sender: FDA-Public Use
  Company Number: CA-JNJFOC-20131215058

PATIENT
  Age: 71 Year
  Sex: Female
  Weight: 125 kg

DRUGS (12)
  1. REMICADE [Suspect]
     Indication: RHEUMATOID ARTHRITIS
     Dosage: FOR 52 WEEKS
     Route: 042
     Dates: start: 20040106
  2. REMICADE [Suspect]
     Indication: RHEUMATOID ARTHRITIS
     Dosage: FOR 52 WEEKS
     Route: 042
     Dates: start: 2007, end: 20131011
  3. FUROSEMIDE [Concomitant]
     Route: 048
  4. ATACAND [Concomitant]
     Route: 048
  5. CRESTOR [Concomitant]
     Route: 048
  6. TRAZODONE [Concomitant]
     Route: 048
  7. CITALOPRAM [Concomitant]
     Route: 048
  8. AVAPRO [Concomitant]
     Route: 048
  9. FELODIPINE [Concomitant]
     Route: 048
  10. NORFLEX (ORPHENADRINE CITRATE) [Concomitant]
     Route: 048
  11. NOVORAPID [Concomitant]
     Route: 058
  12. NOVOLIN NPH [Concomitant]
     Route: 058

REACTIONS (3)
  - Death [Fatal]
  - Fall [Unknown]
  - Infection [Unknown]
